FAERS Safety Report 10634170 (Version 1)
Quarter: 2014Q4

REPORT INFORMATION
  Report Type: Spontaneous
  Country: US (occurrence: None)
  Receive Date: 20141203
  Receipt Date: 20141203
  Transmission Date: 20150529
  Serious: Yes (Hospitalization)
  Sender: FDA-Public Use
  Company Number: None

PATIENT
  Age: 66 Year
  Sex: Male
  Weight: 81.9 kg

DRUGS (3)
  1. CARBOPLATIN. [Suspect]
     Active Substance: CARBOPLATIN
  2. TAXOL [Suspect]
     Active Substance: PACLITAXEL
  3. BEVACIZUMAB (RHUMAB VEGF) [Suspect]
     Active Substance: BEVACIZUMAB

REACTIONS (7)
  - Electrocardiogram T wave abnormal [None]
  - Dehydration [None]
  - Decreased appetite [None]
  - Sinus tachycardia [None]
  - Neutropenia [None]
  - Nausea [None]
  - Pyrexia [None]

NARRATIVE: CASE EVENT DATE: 20141128
